FAERS Safety Report 24707326 (Version 1)
Quarter: 2024Q4

REPORT INFORMATION
  Report Type: Spontaneous
  Country: PL (occurrence: PL)
  Receive Date: 20241206
  Receipt Date: 20241206
  Transmission Date: 20250114
  Serious: Yes (Other)
  Sender: NOVARTIS
  Company Number: PL-002147023-NVSC2024PL228101

PATIENT
  Age: 71 Year
  Sex: Male

DRUGS (1)
  1. SCEMBLIX [Suspect]
     Active Substance: ASCIMINIB HYDROCHLORIDE
     Indication: Chronic myeloid leukaemia
     Dosage: 40 MG, BID (EVERY 12 HOURS)
     Route: 065
     Dates: start: 20231128

REACTIONS (9)
  - Pulmonary fibrosis [Unknown]
  - Emphysema [Unknown]
  - Upper respiratory tract infection [Unknown]
  - Pancreatic toxicity [Recovered/Resolved]
  - Auscultation [Unknown]
  - Dyspnoea [Unknown]
  - Cough [Unknown]
  - Laboratory test abnormal [Recovered/Resolved]
  - Musculoskeletal chest pain [Unknown]

NARRATIVE: CASE EVENT DATE: 20231228
